FAERS Safety Report 4417499-7 (Version None)
Quarter: 2004Q3

REPORT INFORMATION
  Report Type: 
  Country: None (occurrence: None)
  Receive Date: 20040804
  Receipt Date: 20040716
  Transmission Date: 20050211
  Serious: Yes (Hospitalization)
  Sender: FDA-Public Use
  Company Number: 2004048205

PATIENT
  Age: 16 Year
  Sex: Male
  Weight: 54.4316 kg

DRUGS (1)
  1. DRAMAMINE-D TAB [Suspect]
     Indication: EUPHORIC MOOD
     Dosage: 12 TABLETS ONCE, ORAL
     Route: 048
     Dates: start: 20040715, end: 20040715

REACTIONS (3)
  - ABNORMAL BEHAVIOUR [None]
  - DISORIENTATION [None]
  - INTENTIONAL OVERDOSE [None]
